FAERS Safety Report 9116646 (Version 1)
Quarter: 2013Q1

REPORT INFORMATION
  Report Type: Spontaneous
  Country: IL (occurrence: IL)
  Receive Date: 20130225
  Receipt Date: 20130225
  Transmission Date: 20140127
  Serious: Yes (Other)
  Sender: FDA-Public Use
  Company Number: PHHY2013IL017351

PATIENT
  Sex: Male

DRUGS (3)
  1. CERTICAN [Suspect]
     Indication: RENAL TRANSPLANT
     Dosage: 3 MG, BID
     Route: 048
  2. TOPAMAX [Interacting]
     Indication: EPILEPSY
     Dosage: UNK UKN, UNK
  3. PROGRAF [Concomitant]
     Dosage: UNK UKN, UNK

REACTIONS (3)
  - Drug interaction [Unknown]
  - Blood creatinine increased [Unknown]
  - Immunosuppressant drug level decreased [Unknown]
